FAERS Safety Report 6806071-7 (Version None)
Quarter: 2010Q2

REPORT INFORMATION
  Report Type: 
  Country: None (occurrence: None)
  Receive Date: 20100629
  Receipt Date: 20091207
  Transmission Date: 20101027
  Serious: No
  Sender: FDA-Public Use
  Company Number: US-PFIZER INC-2007093533

PATIENT
  Age: 64 Year
  Sex: Female

DRUGS (2)
  1. TIKOSYN [Suspect]
     Dosage: 250 MG, 2X/DAY
  2. QUINAPRIL HCL [Concomitant]
     Indication: HYPERTENSION
     Dosage: 40 MG, 1X/DAY

REACTIONS (2)
  - DRUG INEFFECTIVE [None]
  - EXPIRED DRUG ADMINISTERED [None]
